FAERS Safety Report 21578028 (Version 2)
Quarter: 2022Q4

REPORT INFORMATION
  Report Type: Spontaneous
  Country: US (occurrence: US)
  Receive Date: 20221110
  Receipt Date: 20221117
  Transmission Date: 20230113
  Serious: No
  Sender: FDA-Public Use
  Company Number: US-PFIZER INC-202201286938

PATIENT
  Sex: Female

DRUGS (1)
  1. PAXLOVID [Suspect]
     Active Substance: NIRMATRELVIR\RITONAVIR
     Indication: COVID-19 treatment
     Dosage: UNK

REACTIONS (6)
  - Pruritus [Not Recovered/Not Resolved]
  - Throat tightness [Unknown]
  - Dysphonia [Unknown]
  - Diarrhoea [Unknown]
  - Malaise [Unknown]
  - Burning sensation [Not Recovered/Not Resolved]
